FAERS Safety Report 5399252-3 (Version None)
Quarter: 2007Q3

REPORT INFORMATION
  Report Type: 
  Country: None (occurrence: None)
  Receive Date: 20070727
  Receipt Date: 20070723
  Transmission Date: 20080115
  Serious: Yes (Other)
  Sender: FDA-Public Use
  Company Number: A0666574A

PATIENT
  Sex: Female

DRUGS (2)
  1. AVANDIA [Suspect]
     Indication: DRUG USE FOR UNKNOWN INDICATION
     Dosage: 8MG PER DAY
     Route: 065
  2. VYTORIN [Concomitant]
     Dosage: 1TAB PER DAY

REACTIONS (2)
  - ATRIAL FIBRILLATION [None]
  - FATIGUE [None]
